FAERS Safety Report 20103923 (Version 1)
Quarter: 2021Q4

REPORT INFORMATION
  Report Type: Spontaneous
  Country: US (occurrence: US)
  Receive Date: 20211123
  Receipt Date: 20211123
  Transmission Date: 20220303
  Serious: No
  Sender: FDA-Public Use
  Company Number: US-AMNEAL PHARMACEUTICALS-2020-AMRX-03941

PATIENT
  Sex: Male
  Weight: 61 kg

DRUGS (3)
  1. ISOTRETINOIN [Suspect]
     Active Substance: ISOTRETINOIN
     Indication: Acne
     Dosage: 20 MILLIGRAM, 3X/DAY
     Route: 048
     Dates: start: 20201118, end: 20201214
  2. CLINDAMYCIN [Concomitant]
     Active Substance: CLINDAMYCIN
     Indication: Acne
     Dosage: APPLY TO FACE
     Route: 061
     Dates: start: 2020
  3. TAZAROTENE [Concomitant]
     Active Substance: TAZAROTENE
     Indication: Acne
     Dosage: APPLY TO FACE QHS
     Route: 061
     Dates: start: 2020

REACTIONS (2)
  - Epistaxis [Unknown]
  - Myalgia [Unknown]

NARRATIVE: CASE EVENT DATE: 20200101
